FAERS Safety Report 4827614-9 (Version None)
Quarter: 2005Q4

REPORT INFORMATION
  Report Type: 
  Country: None (occurrence: None)
  Receive Date: 20051110
  Receipt Date: 20051026
  Transmission Date: 20060501
  Serious: Yes (Death)
  Sender: FDA-Public Use
  Company Number: 2005S1009967

PATIENT
  Age: 78 Year
  Sex: Female

DRUGS (13)
  1. CLOZAPINE [Suspect]
     Indication: SCHIZOPHRENIA
     Dosage: 100 MG; QAM; ORAL; 150 MG; QOD; ORAL
     Route: 048
     Dates: start: 20050404, end: 20051006
  2. CLOZAPINE [Suspect]
     Indication: SCHIZOPHRENIA
     Dosage: 100 MG; QAM; ORAL; 150 MG; QOD; ORAL
     Route: 048
     Dates: start: 20050404, end: 20051016
  3. ALBUTEROL [Concomitant]
  4. WARFARIN SODIUM [Concomitant]
  5. SPIRONOLACTONE [Concomitant]
  6. FUROSEMIDE [Concomitant]
  7. POTASSIUM [Concomitant]
  8. MAGNESIUM OXIDE [Concomitant]
  9. TRIAMCINOLONE ACETONIDE [Concomitant]
  10. PREDNISONE [Concomitant]
  11. FAMOTIDINE [Concomitant]
  12. DIGOXIN [Concomitant]
  13. HUMALOG LANTUS [Concomitant]

REACTIONS (1)
  - DEATH [None]
